FAERS Safety Report 21661697 (Version 3)
Quarter: 2023Q4

REPORT INFORMATION
  Report Type: Report from Study
  Country: US (occurrence: US)
  Receive Date: 20221130
  Receipt Date: 20231116
  Transmission Date: 20240109
  Serious: Yes (Other)
  Sender: FDA-Public Use
  Company Number: US-ABBVIE-22K-163-4367367-00

PATIENT
  Age: 88 Year
  Sex: Female

DRUGS (5)
  1. IMBRUVICA [Suspect]
     Active Substance: IBRUTINIB
     Indication: Chronic lymphocytic leukaemia
     Route: 048
     Dates: start: 201609, end: 201609
  2. IMBRUVICA [Suspect]
     Active Substance: IBRUTINIB
     Indication: Chronic lymphocytic leukaemia
     Route: 048
  3. IMBRUVICA [Suspect]
     Active Substance: IBRUTINIB
     Indication: Chronic lymphocytic leukaemia
     Route: 048
     Dates: start: 201512
  4. IMBRUVICA [Suspect]
     Active Substance: IBRUTINIB
     Indication: Chronic lymphocytic leukaemia
     Route: 048
     Dates: start: 20161009
  5. ELIQUIS [Suspect]
     Active Substance: APIXABAN
     Indication: Product used for unknown indication
     Route: 065

REACTIONS (18)
  - Limb injury [Unknown]
  - Limb injury [Unknown]
  - Clubbing [Unknown]
  - White blood cell count increased [Recovering/Resolving]
  - Nail disorder [Unknown]
  - Dry skin [Unknown]
  - Poor quality sleep [Unknown]
  - Contusion [Not Recovered/Not Resolved]
  - Limb injury [Unknown]
  - Skin laceration [Unknown]
  - Skin fragility [Unknown]
  - Wound secretion [Unknown]
  - Impaired healing [Unknown]
  - Skin abrasion [Unknown]
  - Memory impairment [Unknown]
  - Skin atrophy [Unknown]
  - Wound secretion [Unknown]
  - Rash [Unknown]

NARRATIVE: CASE EVENT DATE: 20220101
